FAERS Safety Report 24985305 (Version 2)
Quarter: 2025Q2

REPORT INFORMATION
  Report Type: Spontaneous
  Country: CA (occurrence: CA)
  Receive Date: 20250219
  Receipt Date: 20250403
  Transmission Date: 20250717
  Serious: Yes (Hospitalization, Other)
  Sender: NOVARTIS
  Company Number: CA-002147023-NVSC2025CA025969

PATIENT
  Age: 2 Year
  Sex: Male

DRUGS (2)
  1. TISAGENLECLEUCEL [Suspect]
     Active Substance: TISAGENLECLEUCEL
     Indication: B-cell type acute leukaemia
     Route: 042
     Dates: start: 20240705, end: 20240705
  2. TISAGENLECLEUCEL [Suspect]
     Active Substance: TISAGENLECLEUCEL
     Indication: Acute lymphocytic leukaemia refractory

REACTIONS (2)
  - Acute lymphocytic leukaemia recurrent [Recovering/Resolving]
  - Minimal residual disease [Recovering/Resolving]

NARRATIVE: CASE EVENT DATE: 20250206
